FAERS Safety Report 25544945 (Version 3)
Quarter: 2025Q4

REPORT INFORMATION
  Report Type: Spontaneous
  Country: US (occurrence: US)
  Receive Date: 20250711
  Receipt Date: 20251022
  Transmission Date: 20260117
  Serious: No
  Sender: SANOFI AVENTIS
  Company Number: US-SA-2025SA195322

PATIENT
  Age: 67 Year
  Sex: Female

DRUGS (1)
  1. DUPIXENT [Suspect]
     Active Substance: DUPILUMAB
     Indication: Neurodermatitis
     Dosage: 300 MG, QOW
     Route: 058

REACTIONS (7)
  - Sinus headache [Unknown]
  - Body temperature decreased [Unknown]
  - Fatigue [Unknown]
  - Pruritus [Recovered/Resolved]
  - Dizziness [Unknown]
  - Vertigo [Unknown]
  - Inappropriate schedule of product administration [Unknown]
